FAERS Safety Report 5699860-6 (Version None)
Quarter: 2008Q2

REPORT INFORMATION
  Report Type: 
  Country: None (occurrence: None)
  Receive Date: 20080410
  Receipt Date: 20080401
  Transmission Date: 20081010
  Serious: Yes (Hospitalization)
  Sender: FDA-Public Use
  Company Number: PT-JNJFOC-20071109932

PATIENT
  Age: 63 Year
  Sex: Male
  Weight: 79.5 kg

DRUGS (2)
  1. INFLIXIMAB [Suspect]
     Indication: PSORIASIS
     Route: 042
  2. OLMESARTAN HYDROCHLOROTHIAZIDE [Concomitant]
     Indication: HYPERTENSION
     Dosage: 20/12.5 MG
     Route: 048

REACTIONS (2)
  - PNEUMONIA [None]
  - TUBERCULOSIS [None]
